FAERS Safety Report 7028023-7 (Version None)
Quarter: 2010Q4

REPORT INFORMATION
  Report Type: 
  Country: None (occurrence: None)
  Receive Date: 20101005
  Receipt Date: 20100924
  Transmission Date: 20110411
  Serious: Yes (Hospitalization, Other)
  Sender: FDA-Public Use
  Company Number: US-CELGENEUS-163-21880-10061390

PATIENT
  Sex: Male

DRUGS (2)
  1. REVLIMID [Suspect]
     Route: 048
     Dates: start: 20100517, end: 20100521
  2. REVLIMID [Suspect]
     Route: 048
     Dates: start: 20100521

REACTIONS (6)
  - BRADYCARDIA [None]
  - DEHYDRATION [None]
  - HYPERGLYCAEMIA [None]
  - MULTIPLE MYELOMA [None]
  - ORAL FUNGAL INFECTION [None]
  - THROMBOCYTOPENIA [None]
